FAERS Safety Report 24131828 (Version 1)
Quarter: 2024Q3

REPORT INFORMATION
  Report Type: Spontaneous
  Country: US (occurrence: None)
  Receive Date: 20240723
  Receipt Date: 20240723
  Transmission Date: 20241017
  Serious: No
  Sender: Public
  Company Number: None

PATIENT
  Age: 66 Year
  Weight: 87.3 kg

DRUGS (8)
  1. ZEPBOUND [Suspect]
     Active Substance: TIRZEPATIDE
     Indication: Obesity
     Dosage: 1 INJECTION ONCE PER WEEK SUBCUTANEOUS ?
     Route: 058
     Dates: start: 20240513, end: 20240720
  2. UNSPECIFIED INGREDIENT [Concomitant]
     Active Substance: UNSPECIFIED INGREDIENT
  3. LITHIUM [Concomitant]
     Active Substance: LITHIUM
  4. METHYLPHENIDATE [Concomitant]
     Active Substance: METHYLPHENIDATE
  5. VITAMIN D [Concomitant]
     Active Substance: VITAMIN D NOS
  6. CALCIUM [Concomitant]
     Active Substance: CALCIUM
  7. MAGNESIUM [Concomitant]
     Active Substance: MAGNESIUM
  8. VITAMINS [Concomitant]
     Active Substance: VITAMINS

REACTIONS (11)
  - Vomiting [None]
  - Diarrhoea [None]
  - Eructation [None]
  - Fatigue [None]
  - Hyperhidrosis [None]
  - Chills [None]
  - Injection site rash [None]
  - Abdominal distension [None]
  - Asthenia [None]
  - Back pain [None]
  - Sensation of foreign body [None]

NARRATIVE: CASE EVENT DATE: 20240720
